FAERS Safety Report 10268449 (Version 1)
Quarter: 2014Q2

REPORT INFORMATION
  Report Type: Spontaneous
  Country: CN (occurrence: CN)
  Receive Date: 20140630
  Receipt Date: 20140630
  Transmission Date: 20141212
  Serious: Yes (Other)
  Sender: FDA-Public Use
  Company Number: CN-BRISTOL-MYERS SQUIBB COMPANY-21099155

PATIENT
  Age: 61 Year
  Sex: Male
  Weight: 64 kg

DRUGS (1)
  1. GLUCOPHAGE TABS 850 MG [Suspect]
     Indication: DIABETES MELLITUS
     Route: 048
     Dates: start: 20111201, end: 20130728

REACTIONS (4)
  - Lactic acidosis [Recovering/Resolving]
  - Hypokalaemia [Recovering/Resolving]
  - Hypoglycaemia [Recovering/Resolving]
  - Gastritis [Recovering/Resolving]
